FAERS Safety Report 8361674-6 (Version None)
Quarter: 2012Q2

REPORT INFORMATION
  Report Type: 
  Country: None (occurrence: None)
  Receive Date: 20120515
  Receipt Date: 20110803
  Transmission Date: 20120825
  Serious: No
  Sender: FDA-Public Use
  Company Number: US-ABBOTT-11P-163-0844067-00

PATIENT
  Sex: Female
  Weight: 54.48 kg

DRUGS (3)
  1. PROMETRIUM [Suspect]
     Indication: PRODUCT USED FOR UNKNOWN INDICATION
     Dates: start: 20090601
  2. PLAQUENIL [Concomitant]
     Indication: SYSTEMIC LUPUS ERYTHEMATOSUS
  3. LEVOTHYROXINE SODIUM [Concomitant]
     Indication: HYPOTHYROIDISM

REACTIONS (6)
  - GENERAL SYMPTOM [None]
  - SEBORRHOEA [None]
  - FATIGUE [None]
  - WEIGHT INCREASED [None]
  - BREAST PAIN [None]
  - FUNGAL INFECTION [None]
